FAERS Safety Report 4296865-7 (Version None)
Quarter: 2004Q1

REPORT INFORMATION
  Report Type: 
  Country: None (occurrence: None)
  Receive Date: 20040126
  Receipt Date: 20030908
  Transmission Date: 20041129
  Serious: No
  Sender: FDA-Public Use
  Company Number: USA030946557

PATIENT
  Age: 14 Year
  Sex: Male
  Weight: 59 kg

DRUGS (2)
  1. STRATTERA [Suspect]
     Dates: start: 20030201
  2. ACCUTANE (ISORETINOIN) [Concomitant]

REACTIONS (2)
  - DIZZINESS [None]
  - VISUAL DISTURBANCE [None]
